FAERS Safety Report 5086429-X (Version None)
Quarter: 2006Q3

REPORT INFORMATION
  Report Type: 
  Country: None (occurrence: None)
  Receive Date: 20060703
  Receipt Date: 20060322
  Transmission Date: 20061208
  Serious: No
  Sender: FDA-Public Use
  Company Number: 2006S1002646

PATIENT
  Age: 38 Year
  Sex: Male

DRUGS (6)
  1. CLOZAPINE [Suspect]
     Indication: SCHIZOPHRENIA
     Dosage: SEE IMAGE
     Route: 048
     Dates: start: 20060202
  2. QUETIAPINE FUMARATE [Concomitant]
  3. VALPROATE SODIUM [Concomitant]
  4. LORAZEPAM [Concomitant]
  5. HALOPERIDOL [Concomitant]
  6. OXCARBAZEPINE [Concomitant]

REACTIONS (1)
  - GRANULOCYTOPENIA [None]
